FAERS Safety Report 10043327 (Version 2)
Quarter: 2014Q4

REPORT INFORMATION
  Report Type: Spontaneous
  Country: US (occurrence: US)
  Receive Date: 20140328
  Receipt Date: 20141223
  Transmission Date: 20150528
  Serious: Yes (Other)
  Sender: FDA-Public Use
  Company Number: US-SA-2014SA037422

PATIENT
  Age: 79 Year
  Sex: Female
  Weight: 49 kg

DRUGS (7)
  1. EPOGEN [Suspect]
     Active Substance: ERYTHROPOIETIN
     Indication: PRODUCT USED FOR UNKNOWN INDICATION
     Route: 065
     Dates: start: 20131217
  2. ALL OTHER THERAPEUTIC PRODUCTS [Concomitant]
     Active Substance: UNSPECIFIED INGREDIENT
  3. VENOFER [Suspect]
     Active Substance: IRON SUCROSE
     Indication: NEPHROGENIC ANAEMIA
     Dosage: DOSE:20 MILLIGRAM(S)/MILLILITRE
     Route: 042
  4. HECTOROL [Suspect]
     Active Substance: DOXERCALCIFEROL
     Indication: PRODUCT USED FOR UNKNOWN INDICATION
     Route: 065
     Dates: start: 20131217
  5. VENOFER [Suspect]
     Active Substance: IRON SUCROSE
     Indication: NEPHROGENIC ANAEMIA
     Route: 065
     Dates: start: 20131217
  6. ELECTROLYTES NOS/GLUCOSE [Concomitant]
  7. NORMAL SALINE [Concomitant]
     Active Substance: SODIUM CHLORIDE

REACTIONS (4)
  - Hypotension [Unknown]
  - Altered state of consciousness [Unknown]
  - Staring [Unknown]
  - Discomfort [Unknown]

NARRATIVE: CASE EVENT DATE: 20131217
